FAERS Safety Report 10172563 (Version 2)
Quarter: 2014Q2

REPORT INFORMATION
  Report Type: Report from Study
  Country: UA (occurrence: UA)
  Receive Date: 20140515
  Receipt Date: 20140515
  Transmission Date: 20141212
  Serious: Yes (Disabling)
  Sender: FDA-Public Use
  Company Number: UA-AMGEN-UKRCT2013028811

PATIENT
  Age: 56 Year
  Sex: Female

DRUGS (2)
  1. DENOSUMAB [Suspect]
     Indication: NEOPLASM MALIGNANT
     Dosage: 120 MG, Q4WK
     Route: 058
     Dates: start: 20071115
  2. TAMOXIFEN [Concomitant]
     Indication: NEOPLASM MALIGNANT
     Dosage: 20 MG, QD
     Dates: start: 20071213

REACTIONS (1)
  - Pulpitis dental [Recovered/Resolved]
